FAERS Safety Report 11976526 (Version 2)
Quarter: 2016Q1

REPORT INFORMATION
  Report Type: Spontaneous
  Country: JP (occurrence: JP)
  Receive Date: 20160129
  Receipt Date: 20160204
  Transmission Date: 20160526
  Serious: Yes (Other)
  Sender: FDA-Public Use
  Company Number: PHJP2016JP001826

PATIENT
  Age: 4 Year
  Sex: Male

DRUGS (7)
  1. IMATINIB [Suspect]
     Active Substance: IMATINIB
     Indication: ACUTE LYMPHOCYTIC LEUKAEMIA
     Dosage: UNK
     Route: 048
  2. PIPERACILINA + TAZOBACTAM [Concomitant]
     Indication: ACUTE LYMPHOCYTIC LEUKAEMIA
     Route: 065
  3. MICAFUNGIN [Concomitant]
     Active Substance: MICAFUNGIN
     Indication: PHILADELPHIA CHROMOSOME POSITIVE
  4. MICAFUNGIN [Concomitant]
     Active Substance: MICAFUNGIN
     Indication: ACUTE LYMPHOCYTIC LEUKAEMIA
     Dosage: UNK
     Route: 065
  5. DORIPENEM [Concomitant]
     Active Substance: DORIPENEM
     Indication: FEBRILE NEUTROPENIA
     Route: 065
  6. CASPOFUNGIN [Concomitant]
     Active Substance: CASPOFUNGIN
     Indication: ACUTE LYMPHOCYTIC LEUKAEMIA
     Dosage: UNK
     Route: 065
  7. CASPOFUNGIN [Concomitant]
     Active Substance: CASPOFUNGIN
     Indication: PHILADELPHIA CHROMOSOME POSITIVE

REACTIONS (13)
  - Splenic abscess [Unknown]
  - Diarrhoea [Unknown]
  - Brain abscess [Unknown]
  - Systemic mycosis [Unknown]
  - Renal abscess [Unknown]
  - Bone marrow failure [Unknown]
  - Pyrexia [Recovered/Resolved]
  - Febrile neutropenia [Unknown]
  - Ascites [Recovering/Resolving]
  - Liver abscess [Unknown]
  - Gastrointestinal mucosal disorder [Unknown]
  - Abdominal pain [Unknown]
  - Pleural effusion [Recovering/Resolving]
